FAERS Safety Report 10612912 (Version 1)
Quarter: 2014Q4

REPORT INFORMATION
  Report Type: Spontaneous
  Country: FR (occurrence: FR)
  Receive Date: 20141127
  Receipt Date: 20141127
  Transmission Date: 20150529
  Serious: Yes (Hospitalization, Other)
  Sender: FDA-Public Use
  Company Number: FR-ASTRAZENECA-2014SE89856

PATIENT
  Age: 16950 Day
  Sex: Female

DRUGS (5)
  1. DEPAMIDE [Interacting]
     Active Substance: VALPROMIDE
     Indication: MENTAL DISORDER
     Dosage: 300 MG, 2 DF EVERY MORNING AND 3 DF EVERY EVENING
     Route: 048
  2. OLANZAPINE. [Suspect]
     Active Substance: OLANZAPINE
     Indication: MENTAL DISORDER
     Route: 048
     Dates: start: 20141014, end: 20141017
  3. XEROQUEL [Suspect]
     Active Substance: QUETIAPINE FUMARATE
     Indication: MENTAL DISORDER
     Route: 048
  4. TERCIAN [Interacting]
     Active Substance: CYAMEMAZINE
     Indication: ANXIETY
     Route: 048
  5. TERCIAN [Interacting]
     Active Substance: CYAMEMAZINE
     Indication: MENTAL DISORDER
     Route: 048

REACTIONS (5)
  - Drug interaction [Unknown]
  - Extrapyramidal disorder [Not Recovered/Not Resolved]
  - Condition aggravated [Recovered/Resolved]
  - Activities of daily living impaired [Unknown]
  - Fall [Unknown]

NARRATIVE: CASE EVENT DATE: 20141014
